FAERS Safety Report 8212051-X (Version None)
Quarter: 2012Q1

REPORT INFORMATION
  Report Type: 
  Country: None (occurrence: None)
  Receive Date: 20120315
  Receipt Date: 20120305
  Transmission Date: 20120608
  Serious: Yes (Hospitalization, Other)
  Sender: FDA-Public Use
  Company Number: PHHY2011JP109064

PATIENT
  Sex: Male
  Weight: 50 kg

DRUGS (14)
  1. ALLOPURINOL [Concomitant]
     Dosage: 100 MG
     Route: 048
  2. BENIDIPINE HYDROCHLORIDE [Concomitant]
     Dosage: 4 MG
     Route: 048
  3. ACETAMINOPHEN [Concomitant]
     Indication: METASTATIC RENAL CELL CARCINOMA
     Dosage: 900 MG, UNK
     Route: 048
     Dates: start: 20111208
  4. PREDNISOLONE [Suspect]
     Indication: METASTATIC RENAL CELL CARCINOMA
     Dosage: 5 MG
     Route: 048
     Dates: start: 20110621, end: 20110901
  5. LANSOPRAZOLE [Concomitant]
     Dosage: 15 MG
     Route: 048
  6. LIMAPROST ALFADEX [Concomitant]
     Indication: METASTATIC RENAL CELL CARCINOMA
     Dosage: 15 UG
     Route: 048
     Dates: start: 20110621, end: 20110901
  7. AFINITOR [Suspect]
     Indication: METASTATIC RENAL CELL CARCINOMA
     Dosage: 10 MG, DAILY
     Route: 048
     Dates: start: 20110620, end: 20111003
  8. AFINITOR [Suspect]
     Dosage: 5 MG, DAILY
     Route: 048
     Dates: start: 20111214, end: 20111229
  9. ETODOLAC [Suspect]
     Indication: METASTATIC RENAL CELL CARCINOMA
     Dosage: 400 MG, DAILY
     Route: 048
  10. METHYCOBAL [Concomitant]
     Indication: METASTATIC RENAL CELL CARCINOMA
     Dosage: 1500 UG, UNK
     Route: 048
     Dates: start: 20110621, end: 20110901
  11. ZOMETA [Suspect]
     Indication: METASTATIC RENAL CELL CARCINOMA
     Dosage: UNK UKN, UNK
     Route: 041
     Dates: start: 20110627
  12. AFINITOR [Suspect]
     Dosage: 5 MG, DAILY
     Route: 048
     Dates: start: 20120106, end: 20120109
  13. FLIVAS [Concomitant]
     Dosage: 50 MG
     Route: 048
  14. LIMAPROST ALFADEX [Concomitant]
     Dosage: 5 UG,
     Route: 048

REACTIONS (5)
  - NEOPLASM PROGRESSION [None]
  - NEOPLASM MALIGNANT [None]
  - C-REACTIVE PROTEIN INCREASED [None]
  - RENAL IMPAIRMENT [None]
  - PYREXIA [None]
